FAERS Safety Report 13603941 (Version 1)
Quarter: 2017Q2

REPORT INFORMATION
  Report Type: Spontaneous
  Country: MX (occurrence: MX)
  Receive Date: 20170602
  Receipt Date: 20170602
  Transmission Date: 20170830
  Serious: Yes (Other)
  Sender: FDA-Public Use
  Company Number: MX-ASTRAZENECA-2017SE57641

PATIENT
  Age: 23254 Day
  Sex: Male
  Weight: 85.5 kg

DRUGS (3)
  1. CANDESARTAN. [Concomitant]
     Active Substance: CANDESARTAN
     Indication: HYPERURICAEMIA
     Route: 048
     Dates: start: 20080303
  2. HYDROCHLOROTHIAZIDE. [Concomitant]
     Active Substance: HYDROCHLOROTHIAZIDE
     Indication: HYPERTENSION
     Route: 048
     Dates: start: 20080303
  3. FORXIGA [Suspect]
     Active Substance: DAPAGLIFLOZIN
     Indication: INSULIN RESISTANCE
     Route: 048
     Dates: start: 20161123, end: 20170330

REACTIONS (1)
  - Rhabdomyolysis [Recovered/Resolved]

NARRATIVE: CASE EVENT DATE: 20170330
